FAERS Safety Report 7453862-8 (Version None)
Quarter: 2011Q2

REPORT INFORMATION
  Report Type: 
  Country: None (occurrence: None)
  Receive Date: 20110502
  Receipt Date: 20110425
  Transmission Date: 20111010
  Serious: Yes (Hospitalization)
  Sender: FDA-Public Use
  Company Number: US-B.I. PHARMACEUTICALS,INC./RIDGEFIELD-2011-BP-11714BP

PATIENT
  Age: 72 Year
  Sex: Female

DRUGS (6)
  1. PRADAXA [Suspect]
     Indication: ATRIAL FIBRILLATION
     Dosage: 300 MG
     Route: 048
     Dates: start: 20110201
  2. GLIPIZIDE [Concomitant]
  3. ATENELOL [Concomitant]
  4. EYE DROPS (UNSURE OF NAME) [Concomitant]
  5. SYNTHROID [Concomitant]
  6. INSULIN [Concomitant]

REACTIONS (5)
  - PYREXIA [None]
  - CELLULITIS [None]
  - INFLAMMATION [None]
  - ABDOMINAL PAIN UPPER [None]
  - ARTHRITIS [None]
